FAERS Safety Report 9244693 (Version 4)
Quarter: 2014Q2

REPORT INFORMATION
  Report Type: Spontaneous
  Country: US (occurrence: US)
  Receive Date: 20130422
  Receipt Date: 20140403
  Transmission Date: 20141212
  Serious: Yes (Hospitalization, Disabling, Other)
  Sender: FDA-Public Use
  Company Number: US-009507513-1304USA006856

PATIENT
  Sex: Female

DRUGS (6)
  1. FOSAMAX [Suspect]
     Indication: OSTEOPOROSIS
     Dosage: 70 MG, QW
     Route: 048
     Dates: start: 20061108, end: 200702
  2. FOSAMAX [Suspect]
     Indication: OSTEOPENIA
  3. FOSAMAX PLUS D [Suspect]
     Indication: OSTEOPOROSIS
     Dosage: 70 MG, QW
     Route: 048
     Dates: start: 20070220, end: 200904
  4. FOSAMAX PLUS D [Suspect]
     Indication: OSTEOPENIA
  5. ALENDRONATE SODIUM [Suspect]
     Dosage: 70 MG, QW
     Route: 048
     Dates: start: 20090430, end: 201102
  6. CELEBREX [Concomitant]
     Indication: OSTEOPENIA
     Dosage: UNK
     Dates: start: 2008

REACTIONS (7)
  - Femoral neck fracture [Not Recovered/Not Resolved]
  - Intramedullary rod insertion [Unknown]
  - Low turnover osteopathy [Not Recovered/Not Resolved]
  - Oral surgery [Unknown]
  - Hysterectomy [Unknown]
  - Electrocardiogram Q wave abnormal [Unknown]
  - Leukocytosis [Unknown]
